FAERS Safety Report 17249243 (Version 1)
Quarter: 2020Q1

REPORT INFORMATION
  Report Type: Spontaneous
  Country: SE (occurrence: SE)
  Receive Date: 20200108
  Receipt Date: 20200108
  Transmission Date: 20200409
  Serious: Yes (Hospitalization)
  Sender: FDA-Public Use
  Company Number: SE-PFIZER INC-2020006315

PATIENT
  Sex: Female

DRUGS (7)
  1. OXASCAND [Suspect]
     Active Substance: OXAZEPAM
     Dosage: 50 MG, UNK
     Route: 048
     Dates: start: 20190318, end: 20190318
  2. SERTRALINE HCL [Suspect]
     Active Substance: SERTRALINE HYDROCHLORIDE
     Dosage: 800 MG, UNK
     Route: 048
     Dates: start: 20190318, end: 20190318
  3. ATARAX [Suspect]
     Active Substance: HYDROXYZINE HYDROCHLORIDE
     Dosage: 1.9 G, UNK
     Route: 048
     Dates: start: 20190318, end: 20190318
  4. QUETIAPINE. [Suspect]
     Active Substance: QUETIAPINE
     Dosage: 2 G, UNK
     Route: 048
     Dates: start: 20190318, end: 20190318
  5. PROPAVAN [Suspect]
     Active Substance: PROPIOMAZINE
     Dosage: 1 G, UNK
     Route: 048
     Dates: start: 20190318, end: 20190318
  6. MIRTAZAPINE. [Suspect]
     Active Substance: MIRTAZAPINE
     Dosage: 315 MG, UNK
     Route: 048
     Dates: start: 20190318, end: 20190318
  7. IBUPROFEN. [Suspect]
     Active Substance: IBUPROFEN
     Dosage: 3.6 G, UNK
     Route: 048
     Dates: start: 20190318, end: 20190318

REACTIONS (3)
  - Intentional self-injury [Unknown]
  - Depressed level of consciousness [Unknown]
  - Intentional overdose [Unknown]

NARRATIVE: CASE EVENT DATE: 20190318
